FAERS Safety Report 9872921 (Version 1)
Quarter: 2014Q1

REPORT INFORMATION
  Report Type: Report from Study
  Country: US (occurrence: US)
  Receive Date: 20140206
  Receipt Date: 20140206
  Transmission Date: 20141002
  Serious: Yes (Death)
  Sender: FDA-Public Use
  Company Number: US-ROCHE-1320797

PATIENT
  Age: 56 Year
  Sex: Male

DRUGS (17)
  1. AVASTIN [Suspect]
     Indication: COLON CANCER
     Dosage: 320 MG WITH SODIUM CHLORIDE (0.9 %) 100 ML
     Route: 040
     Dates: start: 20120117
  2. AVASTIN [Suspect]
     Indication: METASTASES TO LUNG
     Dosage: 315 MG WITH SODIUM CHLORIDE (0.9 %) 100 ML
     Route: 040
     Dates: start: 20120131
  3. AVASTIN [Suspect]
     Dosage: 295 MG WITH SODIUM CHLORIDE (0.9 %) 100 ML
     Route: 040
     Dates: start: 20120306
  4. AVASTIN [Suspect]
     Dosage: 305 MG WITH SODIUM CHLORIDE (0.9 %) 100 ML
     Route: 040
     Dates: start: 20120320
  5. IRINOTECAN [Concomitant]
     Dosage: FOLFIRI
     Route: 040
  6. LEUCOVORIN CALCIUM [Concomitant]
     Route: 040
  7. FLUOROURACIL [Concomitant]
     Dosage: FOLFIRI
     Route: 040
  8. FLUOROURACIL [Concomitant]
     Dosage: INJECTION
     Route: 042
  9. FLEXERIL (UNITED STATES) [Concomitant]
     Dosage: TAKEN ONE TIME
     Route: 048
  10. DEXAMETHASONE [Concomitant]
     Dosage: ONE TIME PRIOR TO CHEMOTHERAPY
     Route: 040
  11. HYDROMORPHONE [Concomitant]
     Indication: PAIN
     Dosage: 2-4MG Q4-6H PRN
     Route: 040
  12. DIAZEPAM [Concomitant]
     Indication: ANXIETY
     Dosage: PRN, 5MG/ML
     Route: 065
  13. EMEND [Concomitant]
     Dosage: 1 HR PRIOR TO CHEMO
     Route: 048
  14. KYTRIL [Concomitant]
     Dosage: PROR TO CHEMOTHERAPY
     Route: 040
  15. ALOXI [Concomitant]
     Dosage: ONE TIME
     Route: 040
  16. FENTANYL PATCH [Concomitant]
     Dosage: 50 MCG
     Route: 062
  17. POTASSIUM CHLORIDE [Concomitant]
     Route: 048

REACTIONS (2)
  - Death [Fatal]
  - Disease progression [Unknown]
